FAERS Safety Report 8893432 (Version 1)
Quarter: 2012Q4

REPORT INFORMATION
  Report Type: 
  Country: CH (occurrence: CH)
  Receive Date: 20121108
  Receipt Date: 20121108
  Transmission Date: 20130627
  Serious: Yes (Hospitalization, Other)
  Sender: FDA-Public Use
  Company Number: CH-JNJFOC-20121010575

PATIENT
  Age: 48 Year
  Sex: Male

DRUGS (2)
  1. REMICADE [Suspect]
     Indication: COLITIS ULCERATIVE
     Route: 042
  2. IMUREK [Suspect]
     Indication: COLITIS ULCERATIVE
     Route: 048
     Dates: end: 20120726

REACTIONS (1)
  - Prostate cancer metastatic [Not Recovered/Not Resolved]
